FAERS Safety Report 12503872 (Version 3)
Quarter: 2016Q2

REPORT INFORMATION
  Report Type: Spontaneous
  Country: BE (occurrence: BE)
  Receive Date: 20160628
  Receipt Date: 20160630
  Transmission Date: 20160815
  Serious: Yes (Hospitalization)
  Sender: FDA-Public Use
  Company Number: PHHY2016BE086542

PATIENT
  Age: 56 Year
  Sex: Male

DRUGS (5)
  1. AMLODIPINE [Concomitant]
     Active Substance: AMLODIPINE BESYLATE
     Indication: PRODUCT USED FOR UNKNOWN INDICATION
     Route: 065
  2. EVEROLIMUS [Suspect]
     Active Substance: EVEROLIMUS
     Indication: HEART TRANSPLANT
     Route: 065
  3. CICLOSPORIN [Suspect]
     Active Substance: CYCLOSPORINE
     Indication: HEART TRANSPLANT
     Route: 065
  4. ACETYLSALICYLIC ACID [Concomitant]
     Active Substance: ASPIRIN
     Indication: PRODUCT USED FOR UNKNOWN INDICATION
     Route: 065
  5. MYCOPHENOLATE MOFETIL. [Concomitant]
     Active Substance: MYCOPHENOLATE MOFETIL
     Indication: PRODUCT USED FOR UNKNOWN INDICATION
     Route: 065

REACTIONS (13)
  - Pharyngeal abscess [Recovering/Resolving]
  - Proteinuria [Recovering/Resolving]
  - Drug level increased [Recovering/Resolving]
  - Bacteraemia [Recovering/Resolving]
  - Post infection glomerulonephritis [Recovering/Resolving]
  - Acute kidney injury [Recovering/Resolving]
  - Parotid gland enlargement [Recovering/Resolving]
  - Pyrexia [Recovering/Resolving]
  - Anuria [Recovering/Resolving]
  - Tooth abscess [Recovering/Resolving]
  - Parotitis [Recovering/Resolving]
  - Haematuria [Recovering/Resolving]
  - Toothache [Recovering/Resolving]
